FAERS Safety Report 24959449 (Version 1)
Quarter: 2025Q1

REPORT INFORMATION
  Report Type: Spontaneous
  Country: US (occurrence: US)
  Receive Date: 20250212
  Receipt Date: 20250212
  Transmission Date: 20250409
  Serious: No
  Sender: LEO PHARM
  Company Number: US-LEO Pharma-377537

PATIENT
  Age: 59 Year
  Sex: Female

DRUGS (1)
  1. ADBRY [Suspect]
     Active Substance: TRALOKINUMAB-LDRM
     Indication: Ill-defined disorder
     Dosage: STARTED 06/2024
     Dates: start: 202406

REACTIONS (5)
  - Injection site swelling [Recovered/Resolved]
  - Mental status changes [Unknown]
  - Injection site pruritus [Recovered/Resolved]
  - Malaise [Unknown]
  - Injection site erythema [Recovered/Resolved]
